FAERS Safety Report 4697088-X (Version None)
Quarter: 2005Q2

REPORT INFORMATION
  Report Type: 
  Country: None (occurrence: None)
  Receive Date: 20050622
  Receipt Date: 20050518
  Transmission Date: 20051028
  Serious: Yes (Other)
  Sender: FDA-Public Use
  Company Number: JP-ROCHE-405184

PATIENT
  Age: 65 Year
  Sex: Female

DRUGS (5)
  1. PEGASYS [Suspect]
     Route: 058
     Dates: start: 20050310, end: 20050428
  2. PEGASYS [Suspect]
     Route: 058
     Dates: start: 20050506, end: 20050512
  3. NORVASC [Concomitant]
     Route: 048
     Dates: end: 20050514
  4. NU-LOTAN [Concomitant]
     Route: 048
     Dates: end: 20050514
  5. PURSENNID [Concomitant]
     Route: 048
     Dates: end: 20050514

REACTIONS (3)
  - CEREBRAL INFARCTION [None]
  - DEMENTIA [None]
  - URINARY INCONTINENCE [None]
